FAERS Safety Report 24353204 (Version 1)
Quarter: 2024Q3

REPORT INFORMATION
  Report Type: Report from Study
  Country: US (occurrence: US)
  Receive Date: 20240923
  Receipt Date: 20240923
  Transmission Date: 20241016
  Serious: No
  Sender: ROCHE
  Company Number: US-ROCHE-3451224

PATIENT
  Age: 62 Year
  Sex: Female

DRUGS (8)
  1. HERCEPTIN [Suspect]
     Active Substance: TRASTUZUMAB
     Indication: Gallbladder cancer
     Route: 065
  2. PERJETA [Suspect]
     Active Substance: PERTUZUMAB
     Indication: Gallbladder cancer
     Route: 065
  3. ONDANSETRON [Concomitant]
     Active Substance: ONDANSETRON
  4. SENNOSIDES [Concomitant]
     Active Substance: SENNOSIDES
  5. DOCUSATE [Concomitant]
     Active Substance: DOCUSATE
  6. NALOXONE [Concomitant]
     Active Substance: NALOXONE
  7. MIRTAZAPINE [Concomitant]
     Active Substance: MIRTAZAPINE
  8. HYDROMORPHONE [Concomitant]
     Active Substance: HYDROMORPHONE

REACTIONS (2)
  - Off label use [Unknown]
  - No adverse event [Unknown]
